FAERS Safety Report 8242338-6 (Version None)
Quarter: 2012Q1

REPORT INFORMATION
  Report Type: 
  Country: None (occurrence: None)
  Receive Date: 20120329
  Receipt Date: 20120321
  Transmission Date: 20120608
  Serious: Yes (Disabling)
  Sender: FDA-Public Use
  Company Number: JP-ASTELLAS-2012JP002593

PATIENT
  Age: 59 Year
  Sex: Female
  Weight: 57 kg

DRUGS (16)
  1. PREDNISOLONE [Suspect]
     Dosage: 20 MG, UNKNOWN/D
     Route: 048
     Dates: start: 20110723, end: 20110728
  2. CEFAZOLIN SODIUM [Concomitant]
     Indication: COLITIS ULCERATIVE
     Dosage: UNK
     Route: 048
  3. PREDNISOLONE [Suspect]
     Indication: COLITIS ULCERATIVE
     Dosage: 20 MG, UNKNOWN/D
     Route: 048
     Dates: start: 20110613, end: 20110624
  4. PREDNISOLONE [Suspect]
     Dosage: 40 MG, UNKNOWN/D
     Route: 065
     Dates: start: 20110708, end: 20110714
  5. RABEPRAZOLE SODIUM [Concomitant]
     Dosage: UNK
     Route: 048
  6. PREDNISOLONE [Suspect]
     Dosage: 15 MG, UNKNOWN/D
     Route: 048
     Dates: start: 20110729, end: 20110804
  7. PREDNISOLONE [Suspect]
     Dosage: 5 MG, UNKNOWN/D
     Route: 048
     Dates: start: 20110812, end: 20110818
  8. PREDNISOLONE [Suspect]
     Dosage: 60 MG, UNKNOWN/D
     Route: 065
     Dates: start: 20110625, end: 20110630
  9. PREDNISOLONE [Suspect]
     Dosage: 30 MG, UNKNOWN/D
     Route: 065
     Dates: start: 20110715, end: 20110722
  10. ASACOL [Concomitant]
     Indication: COLITIS ULCERATIVE
     Dosage: 3600 MG, UNKNOWN/D
     Route: 048
  11. TACROLIMUS [Suspect]
     Indication: COLITIS ULCERATIVE
     Dosage: 3 MG, BID
     Route: 048
     Dates: start: 20110706, end: 20110711
  12. AZATHIOPRINE SODIUM [Concomitant]
     Indication: COLITIS ULCERATIVE
     Dosage: 25 MG, UNKNOWN/D
     Route: 048
     Dates: start: 20110729, end: 20110804
  13. AZATHIOPRINE SODIUM [Concomitant]
     Dosage: 30 MG, UNKNOWN/D
     Route: 048
     Dates: start: 20110805
  14. DAIKENTYUTO [Concomitant]
     Dosage: UNK
     Route: 048
  15. PREDNISOLONE [Suspect]
     Dosage: 10 MG, UNKNOWN/D
     Route: 048
     Dates: start: 20110805, end: 20110811
  16. PREDNISOLONE [Suspect]
     Dosage: 50 MG, UNKNOWN/D
     Route: 065
     Dates: start: 20110701, end: 20110707

REACTIONS (1)
  - LIVER DISORDER [None]
